FAERS Safety Report 13555133 (Version 1)
Quarter: 2017Q2

REPORT INFORMATION
  Report Type: Spontaneous
  Country: DE (occurrence: DE)
  Receive Date: 20170517
  Receipt Date: 20170517
  Transmission Date: 20170830
  Serious: Yes (Hospitalization)
  Sender: FDA-Public Use
  Company Number: DE-JNJFOC-20170507904

PATIENT
  Age: 28 Year
  Sex: Male

DRUGS (3)
  1. PIPAMPERONE [Concomitant]
     Active Substance: PIPAMPERONE
     Route: 048
     Dates: start: 20170127, end: 20170215
  2. PANTOPRAZOLE SODIUM. [Concomitant]
     Active Substance: PANTOPRAZOLE SODIUM
     Route: 048
     Dates: start: 20170125
  3. RISPERDAL [Suspect]
     Active Substance: RISPERIDONE
     Indication: PSYCHOTIC DISORDER
     Dosage: 0.5 - 2 MG
     Route: 048
     Dates: start: 20170203, end: 20170217

REACTIONS (3)
  - Off label use [Unknown]
  - Depersonalisation/derealisation disorder [Recovered/Resolved]
  - Intentional product use issue [Unknown]

NARRATIVE: CASE EVENT DATE: 20170203
